FAERS Safety Report 20394479 (Version 1)
Quarter: 2022Q1

REPORT INFORMATION
  Report Type: Report from Study
  Country: US (occurrence: US)
  Receive Date: 20220129
  Receipt Date: 20220129
  Transmission Date: 20220424
  Serious: Yes (Other)
  Sender: FDA-Public Use
  Company Number: US-AMGEN-USASL2022010799

PATIENT
  Age: 61 Year
  Sex: Female

DRUGS (1)
  1. REPATHA [Suspect]
     Active Substance: EVOLOCUMAB
     Indication: Blood cholesterol increased
     Dosage: 140 MILLIGRAM, Q2WK
     Route: 065
     Dates: start: 20220114

REACTIONS (5)
  - Seizure [Unknown]
  - Myalgia [Unknown]
  - Ear pain [Unknown]
  - Pain in extremity [Unknown]
  - Pain in jaw [Unknown]

NARRATIVE: CASE EVENT DATE: 20220117
